FAERS Safety Report 19089046 (Version 2)
Quarter: 2021Q2

REPORT INFORMATION
  Report Type: Report from Study
  Country: KE (occurrence: KE)
  Receive Date: 20210403
  Receipt Date: 20210512
  Transmission Date: 20210717
  Serious: Yes (Hospitalization)
  Sender: FDA-Public Use
  Company Number: KE-CIPLA LTD.-2021KE02446

PATIENT

DRUGS (2)
  1. ABACAVIR/LAMIVUDINE [Suspect]
     Active Substance: ABACAVIR\LAMIVUDINE
     Indication: HIV INFECTION WHO CLINICAL STAGE III
     Dosage: 1.5 DOSAGE FORM, BID, 90MG/45MG BID DAILY
     Route: 048
     Dates: start: 20161128, end: 20181002
  2. LOPINAVIR/RITONAVIR [Suspect]
     Active Substance: LOPINAVIR\RITONAVIR
     Indication: HIV INFECTION WHO CLINICAL STAGE III
     Dosage: 3 DOSAGE FORM, BID, 120MG/30MG BID DAILY
     Route: 048
     Dates: start: 20161128, end: 20181002

REACTIONS (1)
  - Gastroenteritis [Recovered/Resolved]

NARRATIVE: CASE EVENT DATE: 20170309
